FAERS Safety Report 9176877 (Version 1)
Quarter: 2013Q1

REPORT INFORMATION
  Report Type: Spontaneous
  Country: US (occurrence: None)
  Receive Date: 20130320
  Receipt Date: 20130320
  Transmission Date: 20140127
  Serious: Yes (Disabling)
  Sender: FDA-Public Use
  Company Number: None

PATIENT
  Age: 82 Year
  Sex: Female
  Weight: 59.88 kg

DRUGS (1)
  1. PROLEA [Suspect]
     Indication: OSTEOPOROSIS
     Dates: start: 20121030, end: 20120319

REACTIONS (4)
  - Pubis fracture [None]
  - Cystitis [None]
  - Colitis [None]
  - Arthralgia [None]
